FAERS Safety Report 16968069 (Version 3)
Quarter: 2019Q4

REPORT INFORMATION
  Report Type: Spontaneous
  Country: HR (occurrence: HR)
  Receive Date: 20191028
  Receipt Date: 20191210
  Transmission Date: 20200122
  Serious: Yes (Hospitalization, Other)
  Sender: FDA-Public Use
  Company Number: HR-MYLANLABS-2019M1101328

PATIENT
  Age: 48 Year
  Sex: Male
  Weight: 86 kg

DRUGS (4)
  1. DIAZEPAM. [Concomitant]
     Active Substance: DIAZEPAM
     Indication: PRODUCT USED FOR UNKNOWN INDICATION
     Dosage: UNK
     Route: 030
  2. IBUPROFEN. [Suspect]
     Active Substance: IBUPROFEN
     Indication: SPINAL PAIN
     Dosage: 600 MG, TID
     Route: 065
  3. IBUPROFEN. [Suspect]
     Active Substance: IBUPROFEN
     Dosage: 600 MG, TID
     Route: 048
     Dates: start: 201811, end: 20181126
  4. DICLOFENAC [Suspect]
     Active Substance: DICLOFENAC
     Indication: SPINAL DISORDER
     Dosage: 3 DF, QD
     Route: 065

REACTIONS (5)
  - Melaena [Unknown]
  - Faeces discoloured [Recovering/Resolving]
  - Gastric ulcer [Unknown]
  - Therapeutic product effect incomplete [Unknown]
  - Gastritis erosive [Unknown]

NARRATIVE: CASE EVENT DATE: 201811
